FAERS Safety Report 15305561 (Version 1)
Quarter: 2018Q3

REPORT INFORMATION
  Report Type: Report from Study
  Country: IT (occurrence: IT)
  Receive Date: 20180822
  Receipt Date: 20180822
  Transmission Date: 20181010
  Serious: Yes (Other)
  Sender: FDA-Public Use
  Company Number: IT-ROCHE-2171671

PATIENT

DRUGS (6)
  1. SOFOSBUVIR [Suspect]
     Active Substance: SOFOSBUVIR
     Indication: HEPATITIS C
     Route: 065
  2. RIBAVIRIN. [Suspect]
     Active Substance: RIBAVIRIN
     Indication: HEPATITIS C
     Route: 065
  3. DACLATASVIR. [Suspect]
     Active Substance: DACLATASVIR
     Indication: HEPATITIS C
     Route: 065
  4. SIMEPREVIR [Suspect]
     Active Substance: SIMEPREVIR
     Indication: HEPATITIS C
     Route: 065
  5. LEDIPASVIR [Suspect]
     Active Substance: LEDIPASVIR
     Indication: HEPATITIS C
     Route: 065
  6. OMBITASVIR/PARITAPREVIR/RITONAVIR [Suspect]
     Active Substance: OMBITASVIR\PARITAPREVIR\RITONAVIR
     Indication: HEPATITIS C
     Route: 065

REACTIONS (16)
  - Abdominal pain [Unknown]
  - Anaemia [Unknown]
  - Headache [Unknown]
  - Diarrhoea [Unknown]
  - Constipation [Unknown]
  - Muscle spasms [Unknown]
  - Decreased appetite [Unknown]
  - Myalgia [Unknown]
  - Hyperbilirubinaemia [Unknown]
  - Rash [Unknown]
  - Affective disorder [Unknown]
  - Fatigue [Unknown]
  - Pruritus [Unknown]
  - Vertigo [Unknown]
  - Nausea [Unknown]
  - Insomnia [Unknown]
